FAERS Safety Report 9408768 (Version 1)
Quarter: 2013Q3

REPORT INFORMATION
  Report Type: Spontaneous
  Country: US (occurrence: US)
  Receive Date: 20130719
  Receipt Date: 20130719
  Transmission Date: 20140515
  Serious: No
  Sender: FDA-Public Use
  Company Number: US-US-EMD SERONO, INC.-7223911

PATIENT
  Age: 59 Year
  Sex: Male
  Weight: 91 kg

DRUGS (8)
  1. REBIF [Suspect]
     Indication: RELAPSING-REMITTING MULTIPLE SCLEROSIS
     Route: 058
     Dates: start: 20130625
  2. REBIF [Suspect]
     Route: 058
     Dates: start: 201307
  3. ZOCOR [Concomitant]
     Indication: PRODUCT USED FOR UNKNOWN INDICATION
  4. TRICOR                             /00499301/ [Concomitant]
     Indication: PRODUCT USED FOR UNKNOWN INDICATION
  5. DIOVAN                             /01319601/ [Concomitant]
     Indication: PRODUCT USED FOR UNKNOWN INDICATION
  6. ONE A DAY MENS [Concomitant]
     Indication: PRODUCT USED FOR UNKNOWN INDICATION
  7. ZYLOPRIM [Concomitant]
     Indication: PRODUCT USED FOR UNKNOWN INDICATION
  8. VITAMIN D                          /00107901/ [Concomitant]
     Indication: PRODUCT USED FOR UNKNOWN INDICATION

REACTIONS (7)
  - Urinary retention [Not Recovered/Not Resolved]
  - Cough [Recovering/Resolving]
  - Sneezing [Recovering/Resolving]
  - Fatigue [Not Recovered/Not Resolved]
  - Influenza like illness [Recovered/Resolved]
  - Injection site erythema [Recovered/Resolved]
  - Injection site discomfort [Not Recovered/Not Resolved]
